FAERS Safety Report 8854056 (Version 5)
Quarter: 2013Q2

REPORT INFORMATION
  Report Type: Spontaneous
  Country: US (occurrence: US)
  Receive Date: 20121022
  Receipt Date: 20130621
  Transmission Date: 20140414
  Serious: Yes (Hospitalization, Other)
  Sender: FDA-Public Use
  Company Number: US-009507513-1012USA01881

PATIENT
  Sex: Female
  Weight: 70.75 kg

DRUGS (7)
  1. FOSAMAX [Suspect]
     Dosage: 70 MG, QW
     Route: 048
     Dates: start: 1998, end: 200902
  2. FOSAMAX [Suspect]
     Route: 048
  3. FOSAMAX PLUS D [Suspect]
     Dosage: 70 MG, UNK, 2800IU
     Route: 048
  4. CALCIUM (UNSPECIFIED) (+) VITAMIN D (UNSPECIFIED) [Concomitant]
     Indication: OSTEOPOROSIS
     Dosage: 600 - 1000 MG DAILY
  5. CLARITIN [Concomitant]
     Dosage: 10 MG, QD PRN
  6. PREMARIN [Concomitant]
     Indication: POSTMENOPAUSE
     Dosage: 1 GM TWICE WEEKLY
  7. OS-CAL + D [Concomitant]

REACTIONS (66)
  - Patellofemoral pain syndrome [Unknown]
  - Device breakage [Unknown]
  - Supraventricular tachycardia [Unknown]
  - Haematuria [Unknown]
  - Osteopenia [Unknown]
  - Osteoarthritis [Unknown]
  - Fracture nonunion [Unknown]
  - Blister [Unknown]
  - Atelectasis [Recovered/Resolved]
  - Seroma [Unknown]
  - Staphylococcal infection [Unknown]
  - Debridement [Unknown]
  - Scar excision [Unknown]
  - Vitamin D deficiency [Unknown]
  - Foot fracture [Unknown]
  - Arrhythmia [Unknown]
  - Arthropathy [Unknown]
  - Limb asymmetry [Unknown]
  - Constipation [Unknown]
  - Pain in extremity [Recovering/Resolving]
  - Headache [Not Recovered/Not Resolved]
  - Gastrooesophageal reflux disease [Unknown]
  - Muscle spasms [Unknown]
  - Femur fracture [Unknown]
  - Intramedullary rod insertion [Unknown]
  - Anaemia postoperative [Unknown]
  - Femur fracture [Unknown]
  - Intramedullary rod insertion [Unknown]
  - Anaemia postoperative [Unknown]
  - Device failure [Unknown]
  - Fracture nonunion [Unknown]
  - Open reduction of fracture [Unknown]
  - Device failure [Unknown]
  - Bone graft [Unknown]
  - Internal fixation of fracture [Unknown]
  - Depression [Recovered/Resolved]
  - Breast cancer [Unknown]
  - Medical device removal [Unknown]
  - Breast lump removal [Unknown]
  - Post procedural haemorrhage [Unknown]
  - Device failure [Unknown]
  - Cellulitis [Unknown]
  - Arthrodesis [Unknown]
  - Procedural dizziness [Unknown]
  - Arthritis [Unknown]
  - Hip arthroplasty [Unknown]
  - Hip arthroplasty [Unknown]
  - Joint dislocation [Not Recovered/Not Resolved]
  - Fracture nonunion [Unknown]
  - Femur fracture [Unknown]
  - Hypotension [Unknown]
  - Atrial fibrillation [Unknown]
  - Blood creatine phosphokinase increased [Unknown]
  - Hypomagnesaemia [Unknown]
  - Pyrexia [Recovered/Resolved]
  - Hypocalcaemia [Unknown]
  - Fall [Unknown]
  - Wrist fracture [Unknown]
  - Ankle fracture [Unknown]
  - Rotator cuff syndrome [Unknown]
  - Meniscus injury [Unknown]
  - Meniscus removal [Unknown]
  - Chondroplasty [Unknown]
  - Hypertension [Unknown]
  - Migraine [Unknown]
  - Meniscus injury [Unknown]
